FAERS Safety Report 6292615-3 (Version None)
Quarter: 2009Q3

REPORT INFORMATION
  Report Type: 
  Country: None (occurrence: None)
  Receive Date: 20090731
  Receipt Date: 20090720
  Transmission Date: 20100115
  Serious: Yes (Hospitalization, Other)
  Sender: FDA-Public Use
  Company Number: US-PFIZER INC-2009244384

PATIENT
  Sex: Male

DRUGS (7)
  1. LYRICA [Suspect]
     Indication: SCROTAL PAIN
     Dosage: UNK
     Dates: start: 20070101
  2. GABAPENTIN [Suspect]
     Indication: SCROTAL PAIN
     Dates: start: 20070713
  3. XALATAN [Concomitant]
     Dosage: UNK
  4. TIMOLOL [Concomitant]
     Dosage: UNK
  5. VITAMINS [Concomitant]
     Dosage: UNK
  6. FISH OIL [Concomitant]
     Dosage: UNK
  7. LEXAPRO [Concomitant]
     Indication: ANXIETY

REACTIONS (10)
  - AORTIC ANEURYSM [None]
  - DRUG INEFFECTIVE [None]
  - HEPATIC ARTERY ANEURYSM [None]
  - JOINT SWELLING [None]
  - LENTICULAR OPACITIES [None]
  - MALAISE [None]
  - NASAL DISORDER [None]
  - SKIN CANCER [None]
  - VISION BLURRED [None]
  - WEIGHT DECREASED [None]
